FAERS Safety Report 4363274-1 (Version None)
Quarter: 2004Q2

REPORT INFORMATION
  Report Type: 
  Country: None (occurrence: None)
  Receive Date: 20040524
  Receipt Date: 20040504
  Transmission Date: 20050107
  Serious: Yes (Hospitalization)
  Sender: FDA-Public Use
  Company Number: US-AMGEN-US075189

PATIENT
  Sex: Male
  Weight: 56.3 kg

DRUGS (10)
  1. EPOGEN [Suspect]
     Indication: RENAL FAILURE CHRONIC
     Route: 058
     Dates: start: 20030204, end: 20040423
  2. IMURAN [Suspect]
     Dates: start: 19870901, end: 20040503
  3. ALLOPURINOL [Suspect]
     Dates: start: 20030605, end: 20040506
  4. CYCLOSPORINE [Concomitant]
     Dates: start: 19870901
  5. PREDNISONE [Concomitant]
     Dates: start: 19870901
  6. CALAN [Concomitant]
     Dates: start: 19890303
  7. LASIX [Concomitant]
     Dates: start: 19870901
  8. FOSAMAX [Concomitant]
     Dates: start: 19980130
  9. EFFEXOR [Concomitant]
     Dates: start: 20030814
  10. ZOLOFT [Concomitant]
     Dates: start: 20040201

REACTIONS (3)
  - BONE MARROW DEPRESSION [None]
  - GOUT [None]
  - THERAPEUTIC RESPONSE DECREASED [None]
